FAERS Safety Report 6588295-X (Version None)
Quarter: 2010Q1

REPORT INFORMATION
  Report Type: 
  Country: None (occurrence: None)
  Receive Date: 20100218
  Receipt Date: 20100211
  Transmission Date: 20100710
  Serious: Yes (Hospitalization)
  Sender: FDA-Public Use
  Company Number: US-ROCHE-676551

PATIENT
  Sex: Female
  Weight: 60 kg

DRUGS (22)
  1. TOCILIZUMAB [Suspect]
     Indication: RHEUMATOID ARTHRITIS
     Dosage: LAST DOSE PRIOR TO SAE: 01 DEC 2009,
     Route: 042
     Dates: start: 20061128, end: 20091222
  2. TOCILIZUMAB [Suspect]
     Dosage: DOSE: 24.0
     Route: 042
     Dates: start: 20090804
  3. TOCILIZUMAB [Suspect]
     Dosage: DOSE: 24.9
     Route: 042
     Dates: start: 20090902
  4. TOCILIZUMAB [Suspect]
     Dosage: DOSE: 24.9
     Route: 042
     Dates: start: 20091027
  5. TOCILIZUMAB [Suspect]
     Dosage: DOSE: 24.0
     Route: 042
     Dates: start: 20091201
  6. PLACEBO [Suspect]
     Indication: RHEUMATOID ARTHRITIS
     Dosage: THE PATIENT WAS PREVIOUSLY ENROLLED IN WA17824 STUDY AND RECEIVED BLINDED TOCILIZUMAB.
     Route: 042
  7. PREDNISONE [Concomitant]
     Dates: start: 20090522
  8. SOMA [Concomitant]
     Dates: start: 20090301
  9. VERAPAMIL [Concomitant]
     Dates: start: 20050101
  10. ZYPREXA [Concomitant]
     Dates: start: 20060101
  11. ZYPREXA [Concomitant]
     Dosage: TDD: 7.5 MG QHS.
  12. NEXIUM [Concomitant]
     Dates: start: 20050101
  13. NEXIUM [Concomitant]
     Dosage: TDD: 40-80 MG.
     Dates: start: 20060101
  14. PREMARIN [Concomitant]
     Dates: start: 19980101
  15. GLUCOPHAGE [Concomitant]
     Dates: start: 20050101
  16. AMBIEN [Concomitant]
  17. DIOVAN HCT [Concomitant]
     Dosage: TDD: 4 QD.  DRUG NAME DIOVAN HCT 80/12.5.
  18. FLONASE [Concomitant]
     Dosage: TDD: 1SP
  19. LIPITOR [Concomitant]
  20. LORTAB [Concomitant]
     Dosage: DRUG NAME: LORTAB 10/500.  TDD: 1 QD.
     Dates: start: 20090522, end: 20091218
  21. SINGULAIR [Concomitant]
  22. WELCHOL [Concomitant]

REACTIONS (1)
  - COLITIS ULCERATIVE [None]
